FAERS Safety Report 13332945 (Version 1)
Quarter: 2017Q1

REPORT INFORMATION
  Report Type: Spontaneous
  Country: US (occurrence: US)
  Receive Date: 20170314
  Receipt Date: 20170314
  Transmission Date: 20170428
  Serious: No
  Sender: FDA-Public Use
  Company Number: US-PFIZER INC-2017108983

PATIENT
  Age: 58 Year
  Sex: Female

DRUGS (2)
  1. LEXAPRO [Suspect]
     Active Substance: ESCITALOPRAM OXALATE
     Indication: MOOD ALTERED
     Dosage: UNK
  2. XANAX [Suspect]
     Active Substance: ALPRAZOLAM
     Indication: MOOD ALTERED
     Dosage: UNK

REACTIONS (1)
  - Drug ineffective [Unknown]
